FAERS Safety Report 23458378 (Version 1)
Quarter: 2024Q1

REPORT INFORMATION
  Report Type: Spontaneous
  Country: FR (occurrence: FR)
  Receive Date: 20240130
  Receipt Date: 20240130
  Transmission Date: 20240410
  Serious: Yes (Other)
  Sender: FDA-Public Use
  Company Number: None

PATIENT
  Age: 78 Year
  Sex: Male
  Weight: 87 kg

DRUGS (2)
  1. TRAMADOL [Interacting]
     Active Substance: TRAMADOL\TRAMADOL HYDROCHLORIDE
     Indication: Arthralgia
     Dosage: 0.5 MG EVERY OTHER DAY AND
     Route: 048
     Dates: end: 20230206
  2. SINTROM [Interacting]
     Active Substance: ACENOCOUMAROL
     Indication: Thrombosis prophylaxis
     Dosage: FOUR-SCORED TABLET, 0.5 MG EVERY OTHER D
     Route: 048
     Dates: end: 20230206

REACTIONS (2)
  - Overdose [Recovered/Resolved]
  - Drug interaction [Unknown]

NARRATIVE: CASE EVENT DATE: 20230206
